FAERS Safety Report 21950393 (Version 2)
Quarter: 2023Q1

REPORT INFORMATION
  Report Type: Report from Study
  Country: CA (occurrence: CA)
  Receive Date: 20230203
  Receipt Date: 20230330
  Transmission Date: 20230418
  Serious: Yes (Other)
  Sender: FDA-Public Use
  Company Number: CA-TAKEDA-2022TUS064257

PATIENT
  Age: 64 Year
  Sex: Female

DRUGS (16)
  1. VEDOLIZUMAB [Suspect]
     Active Substance: VEDOLIZUMAB
     Indication: Colitis ulcerative
     Dosage: 300 MILLIGRAM
     Route: 042
     Dates: start: 20220829
  2. VEDOLIZUMAB [Suspect]
     Active Substance: VEDOLIZUMAB
     Dosage: 300 MILLIGRAM
     Route: 042
  3. VEDOLIZUMAB [Suspect]
     Active Substance: VEDOLIZUMAB
     Dosage: 300 MILLIGRAM
     Route: 042
  4. VEDOLIZUMAB [Suspect]
     Active Substance: VEDOLIZUMAB
     Dosage: 300 MILLIGRAM, Q4WEEKS
     Route: 042
     Dates: start: 20230327
  5. ESBRIET [Concomitant]
     Active Substance: PIRFENIDONE
     Dosage: UNK UNK, QD
     Route: 048
  6. CIPROFLOXACIN [Concomitant]
     Active Substance: CIPROFLOXACIN
     Dosage: 250 MILLIGRAM, BID
     Route: 048
  7. PANTOPRAZOLE MAGNESIUM [Concomitant]
     Active Substance: PANTOPRAZOLE MAGNESIUM
     Dosage: 40 MILLIGRAM, BID
     Route: 048
  8. CELLCEPT [Concomitant]
     Active Substance: MYCOPHENOLATE MOFETIL
     Dosage: 1000 MILLIGRAM, BID
     Route: 048
  9. ZOPICLONE [Concomitant]
     Active Substance: ZOPICLONE
     Dosage: 7.4 MILLIGRAM
     Route: 048
  10. PAXIL [Concomitant]
     Active Substance: PAROXETINE HYDROCHLORIDE
     Dosage: 30 MILLIGRAM
     Route: 048
  11. XARELTO [Concomitant]
     Active Substance: RIVAROXABAN
     Dosage: 20 MILLIGRAM
     Route: 048
  12. PREDNISONE [Concomitant]
     Active Substance: PREDNISONE
     Dosage: 5 MILLIGRAM
     Route: 048
  13. IPRATROPIUM [Concomitant]
     Active Substance: IPRATROPIUM
     Dosage: 0.3 PERCENT, BID
     Route: 045
  14. TRAMADOL [Concomitant]
     Active Substance: TRAMADOL
     Dosage: 3.7 MILLIGRAM, Q2HR
     Route: 048
  15. OXYGEN [Concomitant]
     Active Substance: OXYGEN
     Dosage: UNK
     Route: 055
  16. IRON [Concomitant]
     Active Substance: IRON
     Dosage: UNK UNK, MONTHLY
     Route: 042
     Dates: start: 20221027

REACTIONS (8)
  - Haematochezia [Not Recovered/Not Resolved]
  - Defaecation urgency [Not Recovered/Not Resolved]
  - Abdominal pain [Not Recovered/Not Resolved]
  - Off label use [Unknown]
  - Vaginal discharge [Unknown]
  - Therapeutic reaction time decreased [Unknown]
  - Flatulence [Unknown]
  - Fistula [Unknown]

NARRATIVE: CASE EVENT DATE: 20230327
